FAERS Safety Report 5657950-8 (Version None)
Quarter: 2008Q1

REPORT INFORMATION
  Report Type: 
  Country: None (occurrence: None)
  Receive Date: 20080305
  Receipt Date: 20080218
  Transmission Date: 20080703
  Serious: No
  Sender: FDA-Public Use
  Company Number: 8030009

PATIENT
  Age: 7 Year
  Sex: Female
  Weight: 24.7 kg

DRUGS (1)
  1. METHYLPHENIDATE HCL [Suspect]
     Indication: ATTENTION DEFICIT/HYPERACTIVITY DISORDER
     Dosage: 20 MG 1/D
     Dates: start: 20070126

REACTIONS (6)
  - APATHY [None]
  - CRYING [None]
  - DECREASED APPETITE [None]
  - FATIGUE [None]
  - MOROSE [None]
  - TIC [None]
